FAERS Safety Report 10591819 (Version 1)
Quarter: 2014Q4

REPORT INFORMATION
  Report Type: Spontaneous
  Country: TR (occurrence: TR)
  Receive Date: 20141118
  Receipt Date: 20141118
  Transmission Date: 20150529
  Serious: Yes (Hospitalization)
  Sender: FDA-Public Use
  Company Number: PHHY2014TR146828

PATIENT
  Age: 18 Year
  Sex: Female

DRUGS (1)
  1. ENOXAPARIN SODIUM. [Suspect]
     Active Substance: ENOXAPARIN SODIUM
     Indication: PRODUCT USED FOR UNKNOWN INDICATION
     Dosage: 70 MG, BID
     Route: 058

REACTIONS (5)
  - Transient ischaemic attack [Unknown]
  - Maternal exposure during pregnancy [Unknown]
  - Nervous system disorder [Recovered/Resolved]
  - Palpitations [Recovered/Resolved]
  - Cardiac valve replacement complication [Recovered/Resolved]
